FAERS Safety Report 7409845-7 (Version None)
Quarter: 2011Q2

REPORT INFORMATION
  Report Type: 
  Country: None (occurrence: None)
  Receive Date: 20110412
  Receipt Date: 20110401
  Transmission Date: 20111010
  Serious: Yes (Life-Threatening)
  Sender: FDA-Public Use
  Company Number: JP-ELI_LILLY_AND_COMPANY-JP201101006943

PATIENT
  Age: 69 Year
  Sex: Male

DRUGS (8)
  1. ZYLORIC [Concomitant]
     Indication: HYPERURICAEMIA
     Dosage: 200 MG, QD
     Route: 048
     Dates: start: 20080804
  2. MEDICON [Concomitant]
     Indication: COUGH
     Dosage: 90 MG, QD
     Route: 048
     Dates: start: 20081020
  3. ALIMTA [Suspect]
     Indication: LUNG ADENOCARCINOMA STAGE IV
     Dosage: 996 MG, UNK
     Route: 042
     Dates: start: 20090727, end: 20090811
  4. TEGRETOL [Concomitant]
     Dosage: 200 MG, QD
     Route: 048
     Dates: start: 20090514, end: 20090819
  5. PANVITAN [Concomitant]
     Dosage: 1 G, DAILY (1/D), 0.5 MG AS FOLIC ACID
     Route: 048
     Dates: start: 20090714, end: 20090916
  6. CYANOCOBALAMIN [Concomitant]
     Route: 065
     Dates: start: 20090101
  7. RESPLEN [Concomitant]
     Indication: COUGH
     Dosage: 60 MG, QD
     Route: 048
     Dates: start: 20081027
  8. MUCOSOLVAN [Concomitant]
     Indication: COUGH
     Dosage: 45 MG, QD
     Route: 048
     Dates: start: 20090318

REACTIONS (1)
  - SYNCOPE [None]
